FAERS Safety Report 6623330-1 (Version None)
Quarter: 2010Q1

REPORT INFORMATION
  Report Type: 
  Country: None (occurrence: None)
  Receive Date: 20100310
  Receipt Date: 20091130
  Transmission Date: 20100710
  Serious: No
  Sender: FDA-Public Use
  Company Number: US-BIOGENIDEC-2009BI038957

PATIENT
  Age: 60 Year
  Sex: Male

DRUGS (1)
  1. AVONEX [Suspect]
     Indication: MULTIPLE SCLEROSIS
     Route: 030
     Dates: start: 20090901

REACTIONS (6)
  - FALL [None]
  - GAIT DISTURBANCE [None]
  - HEAD INJURY [None]
  - INFLUENZA LIKE ILLNESS [None]
  - INSOMNIA [None]
  - MUSCLE SPASTICITY [None]
